FAERS Safety Report 13605086 (Version 1)
Quarter: 2017Q2

REPORT INFORMATION
  Report Type: Spontaneous
  Country: US (occurrence: US)
  Receive Date: 20170601
  Receipt Date: 20170601
  Transmission Date: 20170830
  Serious: Yes (Hospitalization, Disabling, Other)
  Sender: FDA-Public Use
  Company Number: None

PATIENT
  Age: 34 Year
  Sex: Male
  Weight: 81.65 kg

DRUGS (5)
  1. HALDOL [Concomitant]
     Active Substance: HALOPERIDOL
  2. INVEGA [Suspect]
     Active Substance: PALIPERIDONE
     Dates: start: 20170501, end: 20170528
  3. RISPERDAL [Concomitant]
     Active Substance: RISPERIDONE
  4. LITHIUM. [Concomitant]
     Active Substance: LITHIUM
  5. SOURCES OF LIFE HOSPITAL BRAND VITAMINS [Concomitant]

REACTIONS (7)
  - Dysarthria [None]
  - Muscle spasms [None]
  - Chest pain [None]
  - Weight increased [None]
  - Abdominal injury [None]
  - Somnolence [None]
  - Painful erection [None]

NARRATIVE: CASE EVENT DATE: 20170504
